FAERS Safety Report 20387387 (Version 5)
Quarter: 2022Q2

REPORT INFORMATION
  Report Type: Spontaneous
  Country: JP (occurrence: JP)
  Receive Date: 20220127
  Receipt Date: 20220614
  Transmission Date: 20220721
  Serious: Yes (Hospitalization)
  Sender: FDA-Public Use
  Company Number: JP-NOVARTISPH-NVSJ2022JP002025

PATIENT
  Age: 88 Year
  Sex: Male
  Weight: 62 kg

DRUGS (11)
  1. ENTRESTO [Suspect]
     Active Substance: SACUBITRIL\VALSARTAN
     Indication: Hypertension
     Dosage: 100 MG, QD
     Route: 048
     Dates: start: 20211214, end: 20220112
  2. ENTRESTO [Suspect]
     Active Substance: SACUBITRIL\VALSARTAN
     Dosage: 200 MG, QD
     Route: 048
     Dates: start: 20220113
  3. LINAGLIPTIN [Suspect]
     Active Substance: LINAGLIPTIN
     Indication: Type 2 diabetes mellitus
     Dosage: 5 MG, QD
     Route: 048
     Dates: start: 20151203, end: 20220124
  4. LANSOPRAZOLE [Concomitant]
     Active Substance: LANSOPRAZOLE
     Indication: Gastrooesophageal reflux disease
     Dosage: 15 MG, QD
     Route: 048
  5. IFENPRODIL [Concomitant]
     Active Substance: IFENPRODIL
     Indication: Prophylaxis
     Dosage: 20 MG, BID
     Route: 048
  6. DILAZEP [Concomitant]
     Active Substance: DILAZEP
     Indication: Angina pectoris
     Dosage: 50 MG, BID
     Route: 048
  7. ZOLPIDEM TARTRATE [Concomitant]
     Active Substance: ZOLPIDEM TARTRATE
     Indication: Insomnia
     Dosage: 5 MG, QD
     Route: 048
     Dates: start: 20151203
  8. TAMSULOSIN [Concomitant]
     Active Substance: TAMSULOSIN
     Indication: Benign prostatic hyperplasia
     Dosage: 0.2 MG, QD
     Route: 048
     Dates: start: 20201224
  9. REMINYL [Concomitant]
     Active Substance: GALANTAMINE
     Indication: Dementia
     Dosage: 8 MG, BID
     Route: 048
     Dates: start: 20210811
  10. FLUTICASONE FUROATE\VILANTEROL TRIFENATATE [Concomitant]
     Active Substance: FLUTICASONE FUROATE\VILANTEROL TRIFENATATE
     Indication: Asthma
     Dosage: 100
     Dates: start: 20170821
  11. MYSER [Concomitant]
     Indication: Eczema
     Dosage: UNK
     Route: 003
     Dates: start: 20160512

REACTIONS (3)
  - Pemphigoid [Recovering/Resolving]
  - Eczema [Unknown]
  - Blister [Unknown]

NARRATIVE: CASE EVENT DATE: 20220122
